FAERS Safety Report 6980230-5 (Version None)
Quarter: 2010Q3

REPORT INFORMATION
  Report Type: 
  Country: None (occurrence: None)
  Receive Date: 20100914
  Receipt Date: 20100906
  Transmission Date: 20110219
  Serious: Yes (Other)
  Sender: FDA-Public Use
  Company Number: JP-ROCHE-725933

PATIENT

DRUGS (3)
  1. GANCICLOVIR SODIUM [Suspect]
     Route: 065
  2. CYCLOSPORINE [Concomitant]
     Indication: PROPHYLAXIS AGAINST GRAFT VERSUS HOST DISEASE
  3. METHOTREXATE [Concomitant]
     Indication: PROPHYLAXIS AGAINST GRAFT VERSUS HOST DISEASE

REACTIONS (3)
  - ACUTE GRAFT VERSUS HOST DISEASE [None]
  - NEUTROPENIA [None]
  - RENAL IMPAIRMENT [None]
